FAERS Safety Report 4432429-X (Version None)
Quarter: 2004Q3

REPORT INFORMATION
  Report Type: 
  Country: None (occurrence: None)
  Receive Date: 20040820
  Receipt Date: 20040816
  Transmission Date: 20050211
  Serious: Yes (Death)
  Sender: FDA-Public Use
  Company Number: 2004AC00227

PATIENT
  Age: 25 Month
  Sex: Male

DRUGS (5)
  1. MEROPENEM [Suspect]
     Indication: LISTERIOSIS
     Dosage: 400 MG TID
     Dates: start: 20040730
  2. MEROPENEM [Suspect]
     Indication: NOSOCOMIAL INFECTION
     Dosage: 400 MG TID
     Dates: start: 20040730
  3. AMPICILLIN [Concomitant]
  4. AMIKACIN [Concomitant]
  5. CEFTRIAXONE [Concomitant]

REACTIONS (3)
  - DRUG INEFFECTIVE [None]
  - LISTERIOSIS [None]
  - PNEUMONIA KLEBSIELLA [None]
